FAERS Safety Report 23300482 (Version 1)
Quarter: 2023Q4

REPORT INFORMATION
  Report Type: Spontaneous
  Country: US (occurrence: US)
  Receive Date: 20231215
  Receipt Date: 20231215
  Transmission Date: 20240109
  Serious: Yes (Hospitalization, Other)
  Sender: FDA-Public Use
  Company Number: US-SANDOZ-SDZ2023US067889

PATIENT
  Age: 55 Year
  Sex: Male

DRUGS (5)
  1. NIRMATRELVIR\RITONAVIR [Suspect]
     Active Substance: NIRMATRELVIR\RITONAVIR
     Indication: Product used for unknown indication
     Dosage: (6 TOTAL DOSES)
     Route: 065
  2. TACROLIMUS [Suspect]
     Active Substance: TACROLIMUS
     Dosage: 1 MG, BID
     Route: 048
  3. TACROLIMUS [Suspect]
     Active Substance: TACROLIMUS
     Indication: Product used for unknown indication
     Dosage: 1.5 MG, BID
     Route: 048
  4. TACROLIMUS [Suspect]
     Active Substance: TACROLIMUS
     Dosage: 1 MG IN THE MORNING AND 0.5 MG AT NIGHT.
     Route: 065
  5. ISAVUCONAZONIUM SULFATE [Concomitant]
     Active Substance: ISAVUCONAZONIUM SULFATE
     Indication: Product used for unknown indication
     Dosage: 372 MG, QD
     Route: 065

REACTIONS (3)
  - Drug level increased [Recovering/Resolving]
  - Drug interaction [Unknown]
  - Acute kidney injury [Recovering/Resolving]
